FAERS Safety Report 4423266-0 (Version None)
Quarter: 2004Q3

REPORT INFORMATION
  Report Type: 
  Country: None (occurrence: None)
  Receive Date: 20040811
  Receipt Date: 19990507
  Transmission Date: 20050211
  Serious: Yes (Hospitalization)
  Sender: FDA-Public Use
  Company Number: 203890

PATIENT
  Age: 52 Year
  Sex: Male

DRUGS (10)
  1. CARVEDILOL [Suspect]
     Route: 048
     Dates: start: 19970618, end: 19970717
  2. FUROSEMIDE [Concomitant]
  3. METILDIGOXIN [Concomitant]
     Dates: start: 19970315
  4. ENALAPRIL MALEATE [Concomitant]
     Dates: start: 19970515
  5. AZOSEMIDE [Concomitant]
     Dates: start: 19970515
  6. BENZBROMARONE [Concomitant]
     Dates: start: 19970515
  7. MEXILETINE HCL [Concomitant]
     Dates: start: 19970315
  8. ISOSORBIDE DINITRATE [Concomitant]
     Dates: start: 19970315
  9. WARFARIN SODIUM [Concomitant]
     Dates: start: 19970312
  10. AZULENE SODIUM SULPHONATE + LEVOGLUTAMIDE [Concomitant]
     Dates: start: 19970315

REACTIONS (2)
  - ATRIAL FIBRILLATION [None]
  - BUNDLE BRANCH BLOCK LEFT [None]
